FAERS Safety Report 6748749-X (Version None)
Quarter: 2010Q2

REPORT INFORMATION
  Report Type: 
  Country: None (occurrence: None)
  Receive Date: 20100601
  Receipt Date: 20100518
  Transmission Date: 20101027
  Serious: Yes (Other)
  Sender: FDA-Public Use
  Company Number: PHHY2010BR32494

PATIENT
  Sex: Female

DRUGS (2)
  1. PARLODEL [Suspect]
     Dosage: UNK
     Dates: end: 20030101
  2. DOSTINEX [Suspect]

REACTIONS (3)
  - ALANINE AMINOTRANSFERASE INCREASED [None]
  - ASPARTATE AMINOTRANSFERASE INCREASED [None]
  - HEPATIC FIBROSIS [None]
